FAERS Safety Report 5614847-7 (Version None)
Quarter: 2008Q1

REPORT INFORMATION
  Report Type: 
  Country: None (occurrence: None)
  Receive Date: 20080131
  Receipt Date: 20080121
  Transmission Date: 20080703
  Serious: Yes (Life-Threatening, Hospitalization)
  Sender: FDA-Public Use
  Company Number: 100#08#2008-00437

PATIENT
  Age: 17 Year
  Sex: Female

DRUGS (1)
  1. MEPERIDINE                                 (PETHIDINE) [Suspect]
     Indication: DRUG USE FOR UNKNOWN INDICATION
     Dosage: 200 X 50 MG ORAL ONCE
     Route: 048

REACTIONS (15)
  - AGITATION [None]
  - CLONUS [None]
  - DELIRIUM [None]
  - GRAND MAL CONVULSION [None]
  - HYPERREFLEXIA [None]
  - LOSS OF CONSCIOUSNESS [None]
  - MIOSIS [None]
  - MYDRIASIS [None]
  - MYOCLONUS [None]
  - NEUROTOXICITY [None]
  - OVERDOSE [None]
  - RESPIRATORY RATE DECREASED [None]
  - SEDATION [None]
  - TACHYCARDIA [None]
  - TREMOR [None]
